FAERS Safety Report 9321489 (Version 2)
Quarter: 2013Q3

REPORT INFORMATION
  Report Type: Report from Study
  Country: US (occurrence: US)
  Receive Date: 20130531
  Receipt Date: 20130705
  Transmission Date: 20140515
  Serious: Yes (Hospitalization)
  Sender: FDA-Public Use
  Company Number: US-US-EMD SERONO, INC.-7213805

PATIENT
  Age: 51 Year
  Sex: Female
  Weight: 91 kg

DRUGS (10)
  1. REBIF [Suspect]
     Indication: PRODUCT USED FOR UNKNOWN INDICATION
     Route: 058
     Dates: start: 20121207
  2. LYRICA [Concomitant]
     Indication: NEURALGIA
  3. BACLOFEN [Concomitant]
     Indication: PRODUCT USED FOR UNKNOWN INDICATION
  4. DULOXETINE [Concomitant]
     Indication: PRODUCT USED FOR UNKNOWN INDICATION
  5. DULOXETINE [Concomitant]
  6. ESTRADIOL [Concomitant]
     Indication: PRODUCT USED FOR UNKNOWN INDICATION
  7. ESTRADIOL [Concomitant]
  8. GABAPENTIN [Concomitant]
     Indication: PRODUCT USED FOR UNKNOWN INDICATION
  9. LEVOTHYROXINE [Concomitant]
     Indication: PRODUCT USED FOR UNKNOWN INDICATION
  10. METFORMIN [Concomitant]
     Indication: PRODUCT USED FOR UNKNOWN INDICATION

REACTIONS (7)
  - Vaginal prolapse [Unknown]
  - Cystocele [Unknown]
  - Rectocele [Unknown]
  - Post procedural haemorrhage [Not Recovered/Not Resolved]
  - Hepatic enzyme increased [Unknown]
  - Injection site erythema [Not Recovered/Not Resolved]
  - Influenza like illness [Unknown]
